FAERS Safety Report 8363812-8 (Version None)
Quarter: 2012Q2

REPORT INFORMATION
  Report Type: 
  Country: None (occurrence: None)
  Receive Date: 20120515
  Receipt Date: 20120515
  Transmission Date: 20120825
  Serious: No
  Sender: FDA-Public Use
  Company Number: None

PATIENT
  Age: 46 Year
  Sex: Female
  Weight: 61.7 kg

DRUGS (2)
  1. VANCOMYCIN [Suspect]
     Indication: INFECTION
     Dosage: 1000 MG ONCE IV
     Route: 042
     Dates: start: 20120201, end: 20120201
  2. PIPERACILLIN AND TAZOBACTAM [Suspect]
     Indication: INFECTION
     Dosage: 3.375 GM QID IV
     Route: 042
     Dates: start: 20120201, end: 20120201

REACTIONS (8)
  - DYSPHONIA [None]
  - URTICARIA [None]
  - ANAPHYLACTIC REACTION [None]
  - DYSPNOEA [None]
  - PRURITUS [None]
  - INFUSION RELATED REACTION [None]
  - SWELLING FACE [None]
  - HYPOTENSION [None]
